FAERS Safety Report 22953501 (Version 2)
Quarter: 2023Q4

REPORT INFORMATION
  Report Type: Spontaneous
  Country: JP (occurrence: JP)
  Receive Date: 20230918
  Receipt Date: 20231017
  Transmission Date: 20240109
  Serious: Yes (Hospitalization, Other)
  Sender: FDA-Public Use
  Company Number: JP-ONO-2023JP023162

PATIENT
  Age: 76 Year
  Sex: Female

DRUGS (77)
  1. SITAGLIPTIN [Suspect]
     Active Substance: SITAGLIPTIN
     Indication: Type 2 diabetes mellitus
     Dosage: 50 MG, EVERYDAY (AFTER LUNCH)
     Route: 048
     Dates: end: 20230816
  2. DAPAGLIFLOZIN [Suspect]
     Active Substance: DAPAGLIFLOZIN
     Indication: Cardiac failure chronic
     Dosage: 10 MG, EVERYDAY (AFTER BREAKFAST)
     Route: 048
     Dates: start: 20230801, end: 20230820
  3. MIROGABALIN BESYLATE [Concomitant]
     Active Substance: MIROGABALIN BESYLATE
     Dosage: 25 MG (AMOUNT PER DOSE, UNEVEN; DIVIDED INTO 2-0-3-0-0-0), STOP DATE: 08-AUG-2023
     Route: 048
  4. MIROGABALIN BESYLATE [Concomitant]
     Active Substance: MIROGABALIN BESYLATE
     Dosage: 5 MG, EVERYDAY (AFTER BREAKFAST), STOP DATE: 11-AUG-2023
     Route: 048
  5. MIROGABALIN BESYLATE [Concomitant]
     Active Substance: MIROGABALIN BESYLATE
     Dosage: 7.5 MG, Q12H (IN THE MORNING AND EVENING/AFTER MEAL), STOP DATE: 16-AUG-2023
     Route: 048
     Dates: start: 20230811
  6. MIROGABALIN BESYLATE [Concomitant]
     Active Substance: MIROGABALIN BESYLATE
     Dosage: 25 MG (AMOUNT PER DOSE, UNEVEN; DIVIDED INTO 2-0-3-0-0-0), STOP DATE: 08-AUG-2023
     Route: 048
  7. MIROGABALIN BESYLATE [Concomitant]
     Active Substance: MIROGABALIN BESYLATE
     Dosage: 5 MG, EVERYDAY (AFTER BREAKFAST), STOP DATE: 11-AUG-2023
     Route: 048
  8. BISOPROLOL FUMARATE [Concomitant]
     Active Substance: BISOPROLOL FUMARATE
     Dosage: 2.5 MG, EVERYDAY(AFTER BREAKFAST)
     Route: 048
     Dates: end: 20230831
  9. SPIRONOLACTONE [Concomitant]
     Active Substance: SPIRONOLACTONE
     Dosage: 25 MG, EVERYDAY (AFTER BREAKFAST)
     Route: 048
     Dates: start: 20230803, end: 20230831
  10. SAMSCA [Concomitant]
     Active Substance: TOLVAPTAN
     Dosage: 3.75 MG, EVERYDAY (AFTER BREAKFAST), STOP DATE: 02-AUG-2023
     Route: 048
  11. SAMSCA [Concomitant]
     Active Substance: TOLVAPTAN
     Dosage: 7.5 MG, EVERYDAY(AFTER BREAKFAST)
     Route: 048
     Dates: start: 20230803, end: 20230809
  12. SAMSCA [Concomitant]
     Active Substance: TOLVAPTAN
     Dosage: 3.75 MG, EVERYDAY(AFTER LUNCH)
     Route: 048
     Dates: start: 20230807, end: 20230809
  13. SAMSCA [Concomitant]
     Active Substance: TOLVAPTAN
     Dosage: 7.5 MG, TWICE DAILY (IN THE MORNING AND EARLY AFTERNOON/AFTER MEAL), STOP DATE: 31-AUG-2023
     Route: 048
     Dates: start: 20230810
  14. SAMSCA [Concomitant]
     Active Substance: TOLVAPTAN
     Dosage: 3.75 MG, EVERYDAY (AFTER BREAKFAST), STOP DATE: 02-AUG-2023
     Route: 048
  15. FUROSEMIDE [Concomitant]
     Active Substance: FUROSEMIDE
     Dosage: 20 MG, EVERYDAY(AFTER BREAKFAST)
     Route: 048
     Dates: end: 20230831
  16. AZILSARTAN KAMEDOXOMIL [Concomitant]
     Active Substance: AZILSARTAN KAMEDOXOMIL
     Dosage: 20 MG, EVERYDAY(AFTER BREAKFAST)
     Route: 048
     Dates: end: 20230801
  17. NICORANDIL [Concomitant]
     Active Substance: NICORANDIL
     Dosage: 5 MG, Q12H(IN THE MORNING AND EVENING/AFTER MEAL)
     Route: 048
     Dates: end: 20230831
  18. ISOSORBIDE [Concomitant]
     Active Substance: ISOSORBIDE
     Dosage: 20 MG, Q12H(IN THE MORNING AND EVENING/AFTER MEAL)
     Route: 048
     Dates: end: 20230831
  19. ROSUVASTATIN [Concomitant]
     Active Substance: ROSUVASTATIN
     Dosage: 10 MG, EVERYDAY(AFTER BREAKFAST)
     Route: 048
     Dates: end: 20230808
  20. ROSUVASTATIN CALCIUM [Concomitant]
     Active Substance: ROSUVASTATIN CALCIUM
     Dosage: 10 MG, EVERYDAY(AFTER BREAKFAST)
     Route: 048
     Dates: start: 20230809, end: 20230831
  21. ENTRESTO [Concomitant]
     Active Substance: SACUBITRIL\VALSARTAN
     Dosage: 100 MG, Q12H(IN THE MORNING AND EVENING/AFTER MEAL)
     Route: 048
     Dates: start: 20230802, end: 20230831
  22. HUSCODE [Concomitant]
     Active Substance: CHLORPHENIRAMINE MALEATE\DIHYDROCODEINE PHOSPHATE\METHYLEPHEDRINE HYDROCHLORIDE, DL-
     Dosage: 1 DF, Q8H(IN THE MORNING, EARLY AFTERNOON, AND EVENING/AFTER MEAL)
     Route: 048
     Dates: end: 20230815
  23. AMBROXOL HYDROCHLORIDE [Concomitant]
     Active Substance: AMBROXOL HYDROCHLORIDE
     Dosage: 45 MG, EVERYDAY(AFTER BREAKFAST)
     Route: 048
     Dates: end: 20230831
  24. SPIRIVA [Concomitant]
     Active Substance: TIOTROPIUM BROMIDE MONOHYDRATE
     Dosage: 2 DF, EVERYDAY, STOP DATE: 24-AUG-2023
     Route: 055
  25. SPIRIVA [Concomitant]
     Active Substance: TIOTROPIUM BROMIDE MONOHYDRATE
     Dosage: 2 DF, EVERYDAY
     Route: 055
     Dates: start: 20230826
  26. FLUTICASONE PROPIONATE\FORMOTEROL FUMARATE [Concomitant]
     Active Substance: FLUTICASONE PROPIONATE\FORMOTEROL FUMARATE
     Dosage: 4 DF, Q12H, STOP DATE: 24-AUG-2023
     Route: 055
  27. FLUTICASONE PROPIONATE\FORMOTEROL FUMARATE [Concomitant]
     Active Substance: FLUTICASONE PROPIONATE\FORMOTEROL FUMARATE
     Dosage: 4 DF, Q12H
     Route: 055
     Dates: start: 20230826
  28. FLUTICASONE PROPIONATE\FORMOTEROL FUMARATE [Concomitant]
     Active Substance: FLUTICASONE PROPIONATE\FORMOTEROL FUMARATE
     Dosage: 4 DF, Q12H, STOP DATE: 24-AUG-2023
     Route: 055
  29. ALVESCO [Concomitant]
     Active Substance: CICLESONIDE
     Dosage: 1 DF, EVERYDAY, STOP DATE: 25-AUG-2023
     Route: 055
  30. ALVESCO [Concomitant]
     Active Substance: CICLESONIDE
     Dosage: 1 DF, EVERYDAY, STOP DATE: 25-AUG-2023
     Route: 055
  31. MIYA-BM [Concomitant]
     Active Substance: CLOSTRIDIUM BUTYRICUM SPORES STRAIN M-55
     Dosage: 1 DF, Q8H(IN THE MORNING, EARLY AFTERNOON, AND EVENING/AFTER MEAL), STOP DATE: 09-AUG-2023
     Route: 048
  32. MIYA-BM [Concomitant]
     Active Substance: CLOSTRIDIUM BUTYRICUM SPORES STRAIN M-55
     Dosage: 1 DF, Q8H(IN THE MORNING, EARLY AFTERNOON, AND EVENING/AFTER MEAL), STOP DATE: 21-AUG-2023
     Route: 048
     Dates: start: 20230819
  33. MIYA-BM [Concomitant]
     Active Substance: CLOSTRIDIUM BUTYRICUM SPORES STRAIN M-55
     Dosage: 1 DF, Q8H(IN THE MORNING, EARLY AFTERNOON, AND EVENING/AFTER MEAL), STOP DATE: 09-AUG-2023
     Route: 048
  34. RABEPRAZOLE SODIUM [Concomitant]
     Active Substance: RABEPRAZOLE SODIUM
     Dosage: 10 MG, EVERYDAY(AFTER BREAKFAST), STOP DATE: 31-AUG-2023
     Route: 048
  35. RABEPRAZOLE SODIUM [Concomitant]
     Active Substance: RABEPRAZOLE SODIUM
     Dosage: 10 MG, EVERYDAY(AFTER BREAKFAST), STOP DATE: 31-AUG-2023
     Route: 048
  36. PREDNISOLONE ACETATE [Concomitant]
     Active Substance: PREDNISOLONE ACETATE
     Dosage: 5 MG, EVERYDAY(AFTER BREAKFAST)
     Route: 048
     Dates: end: 20230831
  37. HUMALOG [Concomitant]
     Active Substance: INSULIN LISPRO
     Dosage: JUST BEFORE BREAKFAST, 6 UNITS; JUST BEFORE LUNCH 10 UNITS; JUST BEFORE DINNER, 8 UNITS
     Route: 065
     Dates: end: 20230824
  38. TRESIBA [Concomitant]
     Active Substance: INSULIN DEGLUDEC
     Dosage: 27 IU, EVERYDAY(BEFORE SLEEP), STOP DATE: 24-AUG-2023
     Route: 065
  39. TRESIBA [Concomitant]
     Active Substance: INSULIN DEGLUDEC
     Dosage: 1 KIT
     Route: 065
     Dates: start: 20230815
  40. TRESIBA [Concomitant]
     Active Substance: INSULIN DEGLUDEC
     Dosage: 18 IU, EVERYDAY(BEFORE SLEEP)
     Route: 065
     Dates: start: 20230831, end: 20230831
  41. TRESIBA [Concomitant]
     Active Substance: INSULIN DEGLUDEC
     Dosage: 27 IU, EVERYDAY(BEFORE SLEEP), STOP DATE: 24-AUG-2023
     Route: 065
  42. INSULIN LISPRO [Concomitant]
     Active Substance: INSULIN LISPRO
     Dosage: 1 KIT
     Route: 065
     Dates: start: 20230804
  43. OXYBUTYNIN CHLORIDE [Concomitant]
     Active Substance: OXYBUTYNIN CHLORIDE
     Dosage: 1 DF, EVERYDAY
     Route: 062
     Dates: end: 20230808
  44. LOXOPROFEN SODIUM [Concomitant]
     Active Substance: LOXOPROFEN SODIUM
     Dosage: 1 DF, Q12H(APPLICATION ON THE SHOULDER)
     Route: 062
     Dates: end: 20230804
  45. INDOMETHACIN [Concomitant]
     Active Substance: INDOMETHACIN
     Dosage: 1 POUCH (PAIN)
     Route: 062
     Dates: start: 20230812, end: 20230812
  46. INDOMETHACIN [Concomitant]
     Active Substance: INDOMETHACIN
     Dosage: 1 POUCH (SHOULDER)
     Route: 062
     Dates: start: 20230813, end: 20230813
  47. GUAIAZULENE [Concomitant]
     Active Substance: GUAIAZULENE
     Dosage: UNKNOWN, SEVERAL TIMES DAILY (RIGHT FOREARM)
     Route: 061
     Dates: start: 20230816, end: 20230816
  48. GUAIAZULENE [Concomitant]
     Active Substance: GUAIAZULENE
     Dosage: UNKNOWN, EVERYDAY(THIGHS)
     Route: 061
     Dates: start: 20230831, end: 20230831
  49. METHYLCOBALAMIN [Concomitant]
     Active Substance: METHYLCOBALAMIN
     Dosage: 0.5 MG, Q8H(IN THE MORNING, EARLY AFTERNOON, AND EVENING/AFTER MEAL)
     Route: 048
     Dates: end: 20230808
  50. METHYLCOBALAMIN [Concomitant]
     Active Substance: METHYLCOBALAMIN
     Dosage: 500 UG, Q8H(IN THE MORNING, EARLY AFTERNOON, AND EVENING/AFTER MEAL)
     Route: 048
     Dates: start: 20230809, end: 20230831
  51. ASPIRIN [Concomitant]
     Active Substance: ASPIRIN
     Dosage: 100 MG, EVERYDAY(AFTER BREAKFAST)
     Route: 048
     Dates: end: 20230831
  52. ALLOPURINOL [Concomitant]
     Active Substance: ALLOPURINOL
     Dosage: 100 MG, EVERYDAY(AFTER BREAKFAST)
     Route: 048
     Dates: end: 20230831
  53. REPAGLINIDE [Concomitant]
     Active Substance: REPAGLINIDE
     Dosage: 0.25 MG, Q8H(IN THE MORNING, EARLY AFTERNOON, AND EVENING/RIGHT BEFORE MEAL; DOSING OMISSION WAS ACC
     Route: 048
     Dates: start: 20230815, end: 20230821
  54. REPAGLINIDE [Concomitant]
     Active Substance: REPAGLINIDE
     Dosage: 0.5 MG, Q8H(IN THE MORNING, EARLY AFTERNOON, AND EVENING/RIGHT BEFORE MEAL; DOSING OMISSION WAS ACCE
     Route: 048
     Dates: start: 20230831, end: 20230831
  55. REPAGLINIDE [Concomitant]
     Active Substance: REPAGLINIDE
     Dosage: 0.25 MG, EVERYDAY(IN THE MORNING/RIGHT BEFORE MEAL; DOSING OMISSION WAS ACCEPTABLE IN THE CASE OF NO
     Route: 048
     Dates: start: 20230819, end: 20230821
  56. REPAGLINIDE [Concomitant]
     Active Substance: REPAGLINIDE
     Dosage: 0.25 MG, TWICE DAILY (IN THE EARLY AFTERNOON AND EVENING/RIGHT BEFORE MEAL; DOSING OMISSION WAS ACCE
     Route: 048
     Dates: start: 20230825
  57. REPAGLINIDE [Concomitant]
     Active Substance: REPAGLINIDE
     Dosage: 0.25 MG, EVERYDAY(IN THE MORNING/RIGHT BEFORE MEAL; DOSING OMISSION WAS ACCEPTABLE IN THE CASE OF NO
     Route: 048
     Dates: start: 20230826
  58. BONALON [Concomitant]
     Active Substance: ALENDRONATE SODIUM
     Dosage: 35 MG, QW(RIGHT AFTER WAKING UP, DRUG INTAKE ON THURSDAYS)
     Route: 048
     Dates: start: 20230803, end: 20230810
  59. MONTELUKAST OD [Concomitant]
     Dosage: 10 MG, EVERYDAY(BEFORE SLEEP)
     Route: 048
     Dates: end: 20230821
  60. AMOXICILLIN\CLAVULANATE POTASSIUM [Concomitant]
     Active Substance: AMOXICILLIN\CLAVULANATE POTASSIUM
     Dosage: 1 DF, Q12H(IN THE MORNING AND EVENING/AFTER MEAL)
     Route: 048
     Dates: end: 20230801
  61. AMOXICILLIN [Concomitant]
     Active Substance: AMOXICILLIN
     Dosage: 250 MG, Q12H(IN THE MORNING AND EVENING/AFTER MEAL)
     Route: 048
     Dates: end: 20230731
  62. CALONAL [Concomitant]
     Active Substance: ACETAMINOPHEN
     Indication: Pain
     Dosage: 400 MG
     Route: 048
     Dates: start: 20230816, end: 20230816
  63. CALONAL [Concomitant]
     Active Substance: ACETAMINOPHEN
     Dosage: 400 MG
     Route: 048
     Dates: start: 20230819, end: 20230819
  64. CALONAL [Concomitant]
     Active Substance: ACETAMINOPHEN
     Dosage: 800 MG
     Route: 048
     Dates: start: 20230820, end: 20230820
  65. CALONAL [Concomitant]
     Active Substance: ACETAMINOPHEN
     Dosage: 400 MG
     Route: 048
     Dates: start: 20230821, end: 20230823
  66. CALONAL [Concomitant]
     Active Substance: ACETAMINOPHEN
     Dosage: 400 MG
     Route: 048
     Dates: start: 20230824, end: 20230824
  67. CALONAL [Concomitant]
     Active Substance: ACETAMINOPHEN
     Dosage: 800 MG
     Route: 048
     Dates: start: 20230825, end: 20230826
  68. CALONAL [Concomitant]
     Active Substance: ACETAMINOPHEN
     Dosage: 400 MG
     Route: 048
     Dates: start: 20230827, end: 20230827
  69. CALONAL [Concomitant]
     Active Substance: ACETAMINOPHEN
     Dosage: 200 MG
     Route: 048
     Dates: start: 20230828, end: 20230828
  70. CALONAL [Concomitant]
     Active Substance: ACETAMINOPHEN
     Dosage: 400 MG
     Route: 048
     Dates: start: 20230829, end: 20230829
  71. CALONAL [Concomitant]
     Active Substance: ACETAMINOPHEN
     Dosage: 400 MG
     Route: 048
     Dates: start: 20230831, end: 20230831
  72. ACETAMINOPHEN\CAFFEINE\PROMETHAZINE\SALICYLAMIDE [Concomitant]
     Active Substance: ACETAMINOPHEN\CAFFEINE\PROMETHAZINE\SALICYLAMIDE
     Dosage: 1 G (AT MASSIVE NASAL DISCHARGE)
     Route: 048
  73. ACETAMINOPHEN\CAFFEINE\PROMETHAZINE\SALICYLAMIDE [Concomitant]
     Active Substance: ACETAMINOPHEN\CAFFEINE\PROMETHAZINE\SALICYLAMIDE
     Dosage: 1 G (AT MASSIVE NASAL DISCHARGE)
     Route: 048
  74. SENNOSIDES [Concomitant]
     Active Substance: SENNOSIDES
     Indication: Constipation
     Dosage: 12 MG
     Route: 048
     Dates: start: 20230810, end: 20230810
  75. JANUVIA [Concomitant]
     Active Substance: SITAGLIPTIN PHOSPHATE
     Dosage: 50 MG, EVERYDAY(AFTER BREAKFAST)
     Route: 048
     Dates: start: 20230819, end: 20230821
  76. JANUVIA [Concomitant]
     Active Substance: SITAGLIPTIN PHOSPHATE
     Dosage: 50 MG, EVERYDAY(AFTER BREAKFAST)
     Route: 048
     Dates: start: 20230824
  77. SHAKUYAKUKANZOTO [Concomitant]
     Active Substance: HERBALS
     Dosage: 2.5 G, Q12H(IN THE MORNING AND EVENING/AFTER MEAL)
     Route: 048
     Dates: end: 20230831

REACTIONS (3)
  - Cardiac failure chronic [Recovered/Resolved]
  - Pneumonia [Unknown]
  - Urinary tract infection [Recovered/Resolved]

NARRATIVE: CASE EVENT DATE: 20230727
